FAERS Safety Report 13109945 (Version 1)
Quarter: 2017Q1

REPORT INFORMATION
  Report Type: Spontaneous
  Country: US (occurrence: US)
  Receive Date: 20170112
  Receipt Date: 20170112
  Transmission Date: 20170428
  Serious: Yes (Other)
  Sender: FDA-Public Use
  Company Number: US-ROCHE-1098947

PATIENT
  Sex: Male

DRUGS (2)
  1. ACTIVASE [Suspect]
     Active Substance: ALTEPLASE
     Indication: ACUTE MYOCARDIAL INFARCTION
     Dosage: TOTAL 2 VIALS USED
     Route: 065
  2. ACTIVASE [Suspect]
     Active Substance: ALTEPLASE
     Route: 065

REACTIONS (3)
  - Rhythm idioventricular [Unknown]
  - Discomfort [Unknown]
  - Extrasystoles [Unknown]
